FAERS Safety Report 7671758-3 (Version None)
Quarter: 2011Q3

REPORT INFORMATION
  Report Type: 
  Country: None (occurrence: None)
  Receive Date: 20110727
  Receipt Date: 20110713
  Transmission Date: 20111222
  Serious: Yes (Hospitalization)
  Sender: FDA-Public Use
  Company Number: 2011PROUSA00475

PATIENT
  Age: 73 Year
  Sex: Male

DRUGS (1)
  1. PROVENGE [Suspect]
     Indication: PROSTATE CANCER METASTATIC
     Dosage: 250 ML, SINGLE, INTRAVENOUS
     Route: 042
     Dates: start: 20110627, end: 20110627

REACTIONS (3)
  - GRAM STAIN POSITIVE [None]
  - MALAISE [None]
  - BACTERIAL INFECTION [None]
